FAERS Safety Report 10423146 (Version 2)
Quarter: 2014Q4

REPORT INFORMATION
  Report Type: Spontaneous
  Country: US (occurrence: None)
  Receive Date: 20140722
  Receipt Date: 20141121
  Transmission Date: 20150528
  Serious: No
  Sender: FDA-Public Use
  Company Number: 163-10004-14060794

PATIENT
  Age: 80 Year
  Sex: Female
  Weight: 79.38 kg

DRUGS (12)
  1. HYDROCO/APAP (PROCET) [Concomitant]
  2. AMBIEN (ZOLPIDEM TARTRATE) (TABLETS) [Concomitant]
  3. OTEZLA [Suspect]
     Active Substance: APREMILAST
     Indication: PSORIATIC ARTHROPATHY
     Dosage: 60 MG, 2 IN 1 D, PO
     Route: 048
     Dates: start: 20140423
  4. CENTRUM SILVER [Concomitant]
     Active Substance: VITAMINS
  5. BETAMETHASONE DIP (BETAMETHASONE) (CREAM) [Concomitant]
  6. CRESTOR (ROSUVASTATIN) (TABLETS) [Concomitant]
  7. TYLENOL (PARACETAMOL) (TABLETS) [Concomitant]
  8. PLAVIX [Concomitant]
     Active Substance: CLOPIDOGREL BISULFATE
  9. METFORMIN [Concomitant]
     Active Substance: METFORMIN HYDROCHLORIDE
  10. ELIDEL (PIMECROLIMUS) (CREAM) [Concomitant]
  11. DIOVAN (VALSARTAN) (TABLETS) [Concomitant]
  12. VITAMIN D (ERGOCALCIFEROL) (CAPSULES) [Concomitant]
     Active Substance: ERGOCALCIFEROL

REACTIONS (1)
  - Diarrhoea [None]

NARRATIVE: CASE EVENT DATE: 2014
